FAERS Safety Report 5037543-6 (Version None)
Quarter: 2006Q2

REPORT INFORMATION
  Report Type: 
  Country: None (occurrence: None)
  Receive Date: 20060626
  Receipt Date: 20060613
  Transmission Date: 20061013
  Serious: Yes (Hospitalization, Other)
  Sender: FDA-Public Use
  Company Number: A-CH2006-12468

PATIENT
  Age: 70 Year
  Sex: Female

DRUGS (4)
  1. TRACLEER [Suspect]
     Indication: PULMONARY HYPERTENSION
     Dosage: SEE IMAGE
     Route: 048
     Dates: start: 20051101
  2. CYCLOPHOSPHAMIDE [Concomitant]
  3. ANTIBIOTICS [Concomitant]
  4. STEROIDS [Concomitant]

REACTIONS (2)
  - HEPATIC ENZYME INCREASED [None]
  - SEPSIS [None]
